FAERS Safety Report 5113766-2 (Version None)
Quarter: 2006Q3

REPORT INFORMATION
  Report Type: 
  Country: None (occurrence: None)
  Receive Date: 20060921
  Receipt Date: 20060921
  Transmission Date: 20061208
  Serious: Yes (Hospitalization)
  Sender: FDA-Public Use
  Company Number: None

PATIENT
  Sex: Male
  Weight: 91.6266 kg

DRUGS (5)
  1. OXANDRIN [Suspect]
     Indication: CHEMOTHERAPY
     Dosage: 10 MG PO BID
     Route: 048
  2. OXANDRIN [Suspect]
     Indication: WEIGHT DECREASED
     Dosage: 10 MG PO BID
     Route: 048
  3. MIRTAZAPINE [Concomitant]
  4. IBUPROFEN [Concomitant]
  5. PROMETHAZINE [Concomitant]

REACTIONS (1)
  - NO ADVERSE DRUG EFFECT [None]
